FAERS Safety Report 5125034-3 (Version None)
Quarter: 2006Q4

REPORT INFORMATION
  Report Type: 
  Country: None (occurrence: None)
  Receive Date: 20061011
  Receipt Date: 20061004
  Transmission Date: 20070319
  Serious: Yes (Hospitalization, Other)
  Sender: FDA-Public Use
  Company Number: US-JNJFOC-20051103148

PATIENT
  Sex: Male

DRUGS (28)
  1. RISPERDAL [Suspect]
     Indication: DRUG USE FOR UNKNOWN INDICATION
     Dosage: HS
     Route: 048
  2. ULTRAM [Suspect]
     Indication: DRUG USE FOR UNKNOWN INDICATION
  3. NADOLOL [Suspect]
     Indication: DRUG USE FOR UNKNOWN INDICATION
  4. NEURONTIN [Concomitant]
  5. NEURONTIN [Concomitant]
  6. DURAGESIC-100 [Concomitant]
  7. NAPROXIN [Concomitant]
  8. TORADOL [Concomitant]
     Indication: PAIN MANAGEMENT
  9. METADATE CD [Concomitant]
  10. AMBIEN [Concomitant]
     Dosage: HS
     Route: 048
  11. VIOXX [Concomitant]
  12. VIOXX [Concomitant]
     Indication: PAIN MANAGEMENT
  13. PROVIGIL [Concomitant]
  14. PROVIGIL [Concomitant]
  15. REMERON [Concomitant]
  16. REMERON [Concomitant]
     Dosage: HS
  17. LEXAPRO [Concomitant]
  18. LEXAPRO [Concomitant]
  19. CELEXA [Concomitant]
  20. LIPITOR [Concomitant]
  21. ESTAZOLAM [Concomitant]
  22. HYDROCODONE BITARTRATE + ACETAMINOPHEN [Concomitant]
  23. LORAZEPAM [Concomitant]
  24. RITALIN XR [Concomitant]
  25. ANTIVERT [Concomitant]
  26. MIRTAZAPINE [Concomitant]
  27. ZOLPIDEM TARTRATE [Concomitant]
  28. MODAFINIL [Concomitant]

REACTIONS (10)
  - BLOOD PRESSURE ORTHOSTATIC ABNORMAL [None]
  - CONVULSION [None]
  - COORDINATION ABNORMAL [None]
  - DEPRESSION [None]
  - DIABETES MELLITUS NON-INSULIN-DEPENDENT [None]
  - DYSARTHRIA [None]
  - EATING DISORDER [None]
  - HYPERSOMNIA [None]
  - SOMNOLENCE [None]
  - VERTIGO [None]
